FAERS Safety Report 12170795 (Version 1)
Quarter: 2016Q1

REPORT INFORMATION
  Report Type: Spontaneous
  Country: IT (occurrence: IT)
  Receive Date: 20160311
  Receipt Date: 20160311
  Transmission Date: 20160526
  Serious: Yes (Hospitalization)
  Sender: FDA-Public Use
  Company Number: IT-AUROBINDO-AUR-APL-2016-02213

PATIENT
  Age: 24 Year
  Sex: Male

DRUGS (2)
  1. QUETIAPINE [Suspect]
     Active Substance: QUETIAPINE
     Indication: PRODUCT USED FOR UNKNOWN INDICATION
     Dosage: 1800 MG, TOTAL
     Route: 048
     Dates: start: 20150807, end: 20150807
  2. CLOTIAPINE [Suspect]
     Active Substance: CLOTHIAPINE
     Indication: PRODUCT USED FOR UNKNOWN INDICATION
     Dosage: 80 MG, TOTAL
     Route: 048
     Dates: start: 20150807, end: 20150807

REACTIONS (6)
  - Suicide attempt [Recovering/Resolving]
  - Altered state of consciousness [Recovering/Resolving]
  - Miosis [Recovering/Resolving]
  - Drug abuse [Recovering/Resolving]
  - Tachycardia [Recovering/Resolving]
  - Sopor [Recovering/Resolving]

NARRATIVE: CASE EVENT DATE: 20150807
